FAERS Safety Report 26186042 (Version 1)
Quarter: 2025Q4

REPORT INFORMATION
  Report Type: Spontaneous
  Country: US (occurrence: None)
  Receive Date: 20251221
  Receipt Date: 20251221
  Transmission Date: 20260118
  Serious: Yes (Disabling)
  Sender: FDA-CTU
  Company Number: None

PATIENT
  Age: 44 Year
  Sex: Female
  Weight: 54 kg

DRUGS (5)
  1. ESCITALOPRAM [Suspect]
     Active Substance: ESCITALOPRAM OXALATE
     Indication: Anxiety
  2. NALTREXONE [Concomitant]
     Active Substance: NALTREXONE
  3. VITAMIN D3 [Concomitant]
     Active Substance: CHOLECALCIFEROL
  4. IRON [Concomitant]
     Active Substance: IRON
  5. B12 [Concomitant]

REACTIONS (3)
  - Sexual dysfunction [None]
  - Genital hypoaesthesia [None]
  - Anorgasmia [None]

NARRATIVE: CASE EVENT DATE: 20230301
